FAERS Safety Report 6272865-2 (Version None)
Quarter: 2009Q3

REPORT INFORMATION
  Report Type: 
  Country: None (occurrence: None)
  Receive Date: 20090717
  Receipt Date: 20090715
  Transmission Date: 20100115
  Serious: Yes (Other)
  Sender: FDA-Public Use
  Company Number: US-GENENTECH-285786

PATIENT
  Sex: Female
  Weight: 96 kg

DRUGS (2)
  1. RITUXAN [Suspect]
     Indication: JUVENILE ARTHRITIS
     Dosage: 1000 MG, X2
     Route: 042
     Dates: start: 20090612
  2. CELEBREX [Concomitant]
     Indication: DRUG USE FOR UNKNOWN INDICATION
     Dosage: 100 MG, BID

REACTIONS (1)
  - FALL [None]
